FAERS Safety Report 4760265-3 (Version None)
Quarter: 2005Q3

REPORT INFORMATION
  Report Type: 
  Country: None (occurrence: None)
  Receive Date: 20050902
  Receipt Date: 20050826
  Transmission Date: 20060218
  Serious: Yes (Hospitalization)
  Sender: FDA-Public Use
  Company Number: US-ROCHE-415812

PATIENT
  Age: 32 Year
  Sex: Female
  Weight: 59.9 kg

DRUGS (5)
  1. PEGASYS [Suspect]
     Indication: HEPATITIS C
     Route: 058
     Dates: start: 20050512, end: 20050813
  2. PEGASYS [Suspect]
     Route: 058
     Dates: start: 20050429
  3. COPEGUS [Suspect]
     Indication: HEPATITIS C
     Route: 048
     Dates: start: 20050512, end: 20050813
  4. COPEGUS [Suspect]
     Route: 048
     Dates: start: 20050829
  5. EFFEXOR [Concomitant]
     Indication: PROPHYLAXIS
     Route: 048
     Dates: end: 20050813

REACTIONS (8)
  - ARTHRALGIA [None]
  - ASTHENIA [None]
  - GASTROENTERITIS [None]
  - HEADACHE [None]
  - INSOMNIA [None]
  - MYALGIA [None]
  - WEIGHT DECREASED [None]
  - WHITE BLOOD CELL COUNT DECREASED [None]
